FAERS Safety Report 6025328-3 (Version None)
Quarter: 2008Q4

REPORT INFORMATION
  Report Type: 
  Country: None (occurrence: None)
  Receive Date: 20081229
  Receipt Date: 20081215
  Transmission Date: 20090506
  Serious: Yes (Hospitalization)
  Sender: FDA-Public Use
  Company Number: 2008AP003340

PATIENT
  Age: 48 Year
  Sex: Female

DRUGS (2)
  1. CARBAMAZEPINE [Suspect]
     Indication: EPILEPSY
     Dosage: 1500 MG;QD
  2. PREGABALIN (PREGABALIN) [Suspect]
     Indication: EPILEPSY
     Dosage: 300 MG;QD

REACTIONS (4)
  - BALANCE DISORDER [None]
  - BRAIN OEDEMA [None]
  - CENTRAL NERVOUS SYSTEM LESION [None]
  - CYTOTOXIC OEDEMA [None]
